FAERS Safety Report 9451492 (Version 8)
Quarter: 2014Q1

REPORT INFORMATION
  Report Type: Report from Study
  Country: DE (occurrence: DE)
  Receive Date: 20130810
  Receipt Date: 20140321
  Transmission Date: 20141002
  Serious: Yes (Hospitalization)
  Sender: FDA-Public Use
  Company Number: DE-ROCHE-1258763

PATIENT
  Age: 71 Year
  Sex: Female
  Weight: 76 kg

DRUGS (9)
  1. RIBAVIRIN [Suspect]
     Indication: CHRONIC HEPATITIS C
     Route: 048
     Dates: start: 20130522, end: 20130725
  2. BLINDED BI 207127 [Suspect]
     Indication: CHRONIC HEPATITIS C
     Route: 048
     Dates: start: 20130522, end: 20130731
  3. BI 201335 [Suspect]
     Indication: CHRONIC HEPATITIS C
     Route: 048
     Dates: start: 20130522, end: 20130731
  4. LYRICA [Concomitant]
     Indication: NEURALGIA
     Dosage: THERAPY START DATE WAS PRIOR TO 25/JUL/2013.
     Route: 065
  5. OXYCODONE [Concomitant]
     Indication: BACK PAIN
     Dosage: THERAPY START DATE WAS PRIOR TO25/JULY/2013
     Route: 048
  6. VITAMIN D2 [Concomitant]
     Indication: VITAMIN D DEFICIENCY
     Dosage: THERAPY START DATE WAS PRIOR TO 25/JULY/2013, DOSE: 20000 U, DAILY DOSE: 2857,1429 U
     Route: 048
  7. BIOTIN [Concomitant]
     Indication: NEURALGIA
     Dosage: THERAPY START DATE WAS PRIOR TO 25/JUL/2013, INDICATION: PNP
     Route: 065
  8. ZOLPIDEM [Concomitant]
     Indication: INSOMNIA
     Dosage: THERAPY START DATE PRIOR TO 22/MAY/2013; DAILY DOSE AS NEEDED 2.5 MG
     Route: 048
  9. CYMBALTA [Concomitant]
     Indication: NEURALGIA
     Dosage: INDICATION : PNP
     Route: 048

REACTIONS (4)
  - Acute prerenal failure [Recovered/Resolved]
  - Fatigue [Recovered/Resolved]
  - Diarrhoea [Recovered/Resolved]
  - Anaemia [Recovered/Resolved]
